FAERS Safety Report 14834752 (Version 4)
Quarter: 2020Q4

REPORT INFORMATION
  Report Type: Spontaneous
  Country: CA (occurrence: CA)
  Receive Date: 20180501
  Receipt Date: 20201126
  Transmission Date: 20210113
  Serious: Yes (Congenital Anomaly, Other)
  Sender: FDA-Public Use
  Company Number: CA-ALLERGAN-1823190US

PATIENT
  Sex: Female
  Weight: 3.16 kg

DRUGS (9)
  1. INSULIN [Suspect]
     Active Substance: INSULIN NOS
     Indication: EXPOSURE DURING PREGNANCY
     Dosage: UNK
     Route: 064
  2. DOCUSATE SODIUM. [Suspect]
     Active Substance: DOCUSATE SODIUM
     Indication: EXPOSURE DURING PREGNANCY
     Dosage: UNK
     Route: 064
  3. CYCLOBENZAPRINE. [Suspect]
     Active Substance: CYCLOBENZAPRINE
     Indication: EXPOSURE DURING PREGNANCY
     Dosage: UNK
     Route: 064
  4. METHYLPHENIDATE. [Suspect]
     Active Substance: METHYLPHENIDATE
     Indication: EXPOSURE DURING PREGNANCY
     Dosage: 36 MG, QD
     Route: 064
  5. LEVOTHYROXINE. [Suspect]
     Active Substance: LEVOTHYROXINE
     Indication: EXPOSURE DURING PREGNANCY
     Dosage: UNK
     Route: 064
  6. OMEPRAZOLE. [Suspect]
     Active Substance: OMEPRAZOLE
     Indication: EXPOSURE DURING PREGNANCY
     Dosage: UNK
     Route: 064
  7. URSODEOXYCHOLIC ACID UNK [Suspect]
     Active Substance: URSODIOL
     Indication: EXPOSURE DURING PREGNANCY
     Dosage: UNK
     Route: 064
  8. DULOXETINE. [Suspect]
     Active Substance: DULOXETINE
     Indication: EXPOSURE DURING PREGNANCY
     Dosage: 90 MG, QD
     Route: 064
  9. IRON SULFATE [Suspect]
     Active Substance: FERROUS SULFATE ANHYDROUS
     Indication: EXPOSURE DURING PREGNANCY
     Dosage: UNK
     Route: 064

REACTIONS (2)
  - Pregnancy [Unknown]
  - Respiratory tract malformation [Unknown]
